FAERS Safety Report 9224583 (Version 1)
Quarter: 2013Q2

REPORT INFORMATION
  Report Type: Spontaneous
  Country: CL (occurrence: None)
  Receive Date: 20130409
  Receipt Date: 20130409
  Transmission Date: 20140414
  Serious: Yes (Death, Other)
  Sender: FDA-Public Use
  Company Number: AUR-APL-2013-02828

PATIENT
  Age: 18 Year
  Sex: Female
  Weight: 71 kg

DRUGS (1)
  1. AMOXICILLIN (AMOXICILLIN) [Suspect]
     Indication: WOUND TREATMENT

REACTIONS (15)
  - Sudden death [None]
  - Allergic myocarditis [None]
  - Myocardial fibrosis [None]
  - Hypersensitivity [None]
  - Loss of consciousness [None]
  - Cyanosis [None]
  - Oedema peripheral [None]
  - Pleural effusion [None]
  - Pericardial effusion [None]
  - Ascites [None]
  - Cardiac failure [None]
  - Myocardial infarction [None]
  - Eosinophilic myocarditis [None]
  - Nausea [None]
  - Vomiting [None]
